FAERS Safety Report 7234116-1 (Version None)
Quarter: 2011Q1

REPORT INFORMATION
  Report Type: 
  Country: None (occurrence: None)
  Receive Date: 20110119
  Receipt Date: 20110111
  Transmission Date: 20110831
  Serious: Yes (Other)
  Sender: FDA-Public Use
  Company Number: US-SANOFI-AVENTIS-2010SA070984

PATIENT
  Age: 59 Year
  Sex: Female

DRUGS (2)
  1. SOLOSTAR [Suspect]
     Indication: TYPE 2 DIABETES MELLITUS
  2. LANTUS [Suspect]
     Indication: TYPE 2 DIABETES MELLITUS
     Dosage: DOSE:24 UNIT(S)
     Route: 058

REACTIONS (6)
  - DEVICE MALFUNCTION [None]
  - BLOOD GLUCOSE INCREASED [None]
  - FEELING ABNORMAL [None]
  - PRODUCT QUALITY ISSUE [None]
  - LOSS OF CONSCIOUSNESS [None]
  - EXPIRED DRUG ADMINISTERED [None]
